FAERS Safety Report 25911421 (Version 1)
Quarter: 2025Q4

REPORT INFORMATION
  Report Type: Spontaneous
  Country: EU (occurrence: EU)
  Receive Date: 20251013
  Receipt Date: 20251013
  Transmission Date: 20260117
  Serious: Yes (Other)
  Sender: NOVARTIS
  Company Number: None

PATIENT
  Age: 64 Year
  Sex: Female
  Weight: 61 kg

DRUGS (1)
  1. COSENTYX [Suspect]
     Active Substance: SECUKINUMAB
     Indication: Psoriatic arthropathy
     Dosage: UNK, 2X 150 (UNKNOWN UNIT) EVERY 1 MONTH, BATCH: 00002155173
     Route: 058
     Dates: start: 20210730, end: 20211029

REACTIONS (3)
  - Oral fungal infection [Recovering/Resolving]
  - Genital infection fungal [Recovering/Resolving]
  - Paronychia [Recovering/Resolving]

NARRATIVE: CASE EVENT DATE: 20211029
